FAERS Safety Report 5045182-6 (Version None)
Quarter: 2006Q3

REPORT INFORMATION
  Report Type: 
  Country: None (occurrence: None)
  Receive Date: 20060707
  Receipt Date: 20050503
  Transmission Date: 20061208
  Serious: Yes (Other)
  Sender: FDA-Public Use
  Company Number: US-GLAXOSMITHKLINE-A0558212A

PATIENT
  Age: 44 Year
  Sex: Female
  Weight: 69.5 kg

DRUGS (8)
  1. PAXIL CR [Suspect]
     Indication: DEPRESSION
     Route: 048
     Dates: start: 20030324
  2. VALIUM [Concomitant]
  3. MAXZIDE [Concomitant]
  4. VENTOLIN [Concomitant]
  5. REGLAN [Concomitant]
  6. YASMIN [Concomitant]
  7. SINGULAIR [Concomitant]
  8. ZELNORM [Concomitant]

REACTIONS (10)
  - CHILLS [None]
  - CRYING [None]
  - DEPRESSION [None]
  - DIZZINESS [None]
  - DRUG WITHDRAWAL SYNDROME [None]
  - MOOD SWINGS [None]
  - NIGHTMARE [None]
  - SUICIDAL IDEATION [None]
  - TREMOR [None]
  - WEIGHT INCREASED [None]
